FAERS Safety Report 25963502 (Version 1)
Quarter: 2025Q4

REPORT INFORMATION
  Report Type: Spontaneous
  Country: US (occurrence: None)
  Receive Date: 20251024
  Receipt Date: 20251024
  Transmission Date: 20260117
  Serious: No
  Sender: FDA-CTU
  Company Number: None

PATIENT
  Sex: Female

DRUGS (4)
  1. TREPROSTINIL [Suspect]
     Active Substance: TREPROSTINIL
     Indication: Pulmonary arterial hypertension
     Dosage: 2.5 MG CONTINUOUSLY INTRAVENOUS?
     Route: 042
     Dates: start: 20250114
  2. OPSUMIT [Concomitant]
     Active Substance: MACITENTAN
  3. SODIUM CHLOR SDV (50ML/FTV) [Concomitant]
  4. WINREVAIR [Concomitant]
     Active Substance: SOTATERCEPT-CSRK

REACTIONS (1)
  - Catheter placement [None]
